FAERS Safety Report 7484149-5 (Version None)
Quarter: 2011Q2

REPORT INFORMATION
  Report Type: 
  Country: None (occurrence: None)
  Receive Date: 20110517
  Receipt Date: 20110504
  Transmission Date: 20111010
  Serious: Yes (Hospitalization, Other)
  Sender: FDA-Public Use
  Company Number: FR-ELI_LILLY_AND_COMPANY-FR201105000916

PATIENT
  Sex: Female

DRUGS (5)
  1. LUDIOMIL                                /SCH/ [Concomitant]
     Indication: DEPRESSION
     Dosage: 25 MG, TID
     Route: 048
     Dates: end: 20080101
  2. CYMBALTA [Suspect]
     Indication: DEPRESSION
     Dosage: 20 MG, BID
     Route: 048
     Dates: start: 20080101, end: 20100101
  3. TERCIAN [Concomitant]
     Indication: DEPRESSION
     Dosage: 25 MG, BID
     Route: 048
     Dates: start: 20080501, end: 20080101
  4. ZYPREXA [Suspect]
     Indication: DEPRESSION
     Dosage: 10 MG, QD
     Route: 048
     Dates: start: 20080401, end: 20101012
  5. CLOMIPRAMINE HYDROCHLORIDE [Concomitant]
     Indication: DEPRESSION
     Dosage: 75 MG, QD
     Route: 048
     Dates: end: 20080101

REACTIONS (5)
  - HOSPITALISATION [None]
  - WEIGHT DECREASED [None]
  - APTYALISM [None]
  - WEIGHT INCREASED [None]
  - ORAL PAIN [None]
